FAERS Safety Report 5959550-9 (Version None)
Quarter: 2008Q4

REPORT INFORMATION
  Report Type: 
  Country: None (occurrence: None)
  Receive Date: 20081120
  Receipt Date: 20081111
  Transmission Date: 20090506
  Serious: Yes (Other)
  Sender: FDA-Public Use
  Company Number: IE-ABBOTT-08P-229-0446031-00

PATIENT
  Age: 71 Year
  Sex: Female

DRUGS (4)
  1. FENOFIBRATE (MICRONIZED) [Suspect]
     Indication: BLOOD CHOLESTEROL INCREASED
     Route: 048
     Dates: start: 20080111, end: 20080201
  2. CETIRIZINE HYDROCHLORIDE [Concomitant]
     Indication: DRUG USE FOR UNKNOWN INDICATION
     Dosage: FILM-COATED TABLETS
  3. SYMBICORT TURBOHALER [Concomitant]
     Indication: DRUG USE FOR UNKNOWN INDICATION
     Dosage: 100/6
  4. ROMEP GASTRO-RESISTANT CAPSULES [Concomitant]
     Indication: DRUG USE FOR UNKNOWN INDICATION

REACTIONS (2)
  - ANGIOEDEMA [None]
  - URTICARIA [None]
